FAERS Safety Report 19647543 (Version 2)
Quarter: 2021Q4

REPORT INFORMATION
  Report Type: Report from Study
  Country: AR (occurrence: AR)
  Receive Date: 20210802
  Receipt Date: 20211026
  Transmission Date: 20220304
  Serious: Yes (Hospitalization, Other)
  Sender: FDA-Public Use
  Company Number: NVSC2021AR173482

PATIENT
  Age: 71 Year
  Sex: Male

DRUGS (1)
  1. COSENTYX [Suspect]
     Active Substance: SECUKINUMAB
     Indication: Psoriatic arthropathy
     Dosage: 150 MG, QMO
     Route: 058
     Dates: start: 20190517

REACTIONS (2)
  - Cerebrovascular accident [Unknown]
  - Speech disorder [Unknown]

NARRATIVE: CASE EVENT DATE: 20210501
